FAERS Safety Report 6719055-4 (Version None)
Quarter: 2010Q2

REPORT INFORMATION
  Report Type: 
  Country: None (occurrence: None)
  Receive Date: 20100511
  Receipt Date: 20100428
  Transmission Date: 20101027
  Serious: Yes (Other)
  Sender: FDA-Public Use
  Company Number: JP-BAYER-201010837BYL

PATIENT
  Age: 59 Year
  Sex: Male

DRUGS (6)
  1. FLUDARA [Suspect]
     Indication: ALLOGENIC BONE MARROW TRANSPLANTATION THERAPY
     Dosage: HLA: MATCHED RELATED DONOR
     Route: 065
     Dates: start: 20060601
  2. FLUDARA [Suspect]
     Dosage: HLA: MATCHED RELATED DONOR
     Route: 065
     Dates: start: 20090611
  3. BUSULFEX [Concomitant]
     Indication: ALLOGENIC BONE MARROW TRANSPLANTATION THERAPY
     Dosage: HLA: MATCHED RELATED DONOR
     Route: 065
     Dates: start: 20060601
  4. BUSULFEX [Concomitant]
     Dosage: HLA: MATCHED RELATED DONOR
     Route: 065
     Dates: start: 20090611
  5. IMATINIB MESILATE [Concomitant]
     Route: 065
     Dates: start: 20090101
  6. DASATINIB HYDRATE [Concomitant]
     Route: 065

REACTIONS (3)
  - HISTIOCYTOSIS HAEMATOPHAGIC [None]
  - INFECTION [None]
  - THROMBOTIC MICROANGIOPATHY [None]
